FAERS Safety Report 21400837 (Version 1)
Quarter: 2022Q4

REPORT INFORMATION
  Report Type: Spontaneous
  Country: ES (occurrence: ES)
  Receive Date: 20221003
  Receipt Date: 20221003
  Transmission Date: 20230113
  Serious: Yes (Other)
  Sender: FDA-Public Use
  Company Number: ES-AEMPS-1264003

PATIENT
  Age: 51 Year
  Sex: Female

DRUGS (1)
  1. AMIODARONE [Suspect]
     Active Substance: AMIODARONE
     Indication: Product used for unknown indication
     Dosage: UNK
     Route: 042
     Dates: start: 20210415, end: 20210415

REACTIONS (4)
  - Flushing [Unknown]
  - Hyperhidrosis [Unknown]
  - Respiratory depression [Unknown]
  - Tachypnoea [Unknown]

NARRATIVE: CASE EVENT DATE: 20210415
